FAERS Safety Report 9283077 (Version 1)
Quarter: 2013Q2

REPORT INFORMATION
  Report Type: Spontaneous
  Country: US (occurrence: US)
  Receive Date: 20130510
  Receipt Date: 20130510
  Transmission Date: 20140414
  Serious: No
  Sender: FDA-Public Use
  Company Number: US-GLAXOSMITHKLINE-A0978753A

PATIENT
  Age: 64 Year
  Sex: Female

DRUGS (9)
  1. TYKERB [Suspect]
     Indication: BREAST CANCER METASTATIC
     Dosage: 1250TAB PER DAY
     Route: 048
     Dates: start: 20120514, end: 20120604
  2. TYKERB [Suspect]
     Indication: BREAST CANCER METASTATIC
     Route: 048
  3. HERCEPTIN [Concomitant]
  4. HYDROMORPHONE [Concomitant]
  5. DECADRON [Concomitant]
  6. PRILOSEC [Concomitant]
  7. PROCHLORPERAZINE [Concomitant]
  8. LANTEX [Concomitant]
  9. RADIATION THERAPY [Concomitant]

REACTIONS (6)
  - Vomiting [Recovered/Resolved]
  - Diarrhoea [Recovered/Resolved]
  - Dyspepsia [Recovered/Resolved]
  - Gastrooesophageal reflux disease [Recovered/Resolved]
  - Abdominal pain upper [Recovered/Resolved]
  - Defaecation urgency [Recovered/Resolved]
